FAERS Safety Report 12536534 (Version 5)
Quarter: 2016Q4

REPORT INFORMATION
  Report Type: Spontaneous
  Country: US (occurrence: US)
  Receive Date: 20160707
  Receipt Date: 20161013
  Transmission Date: 20170207
  Serious: No
  Sender: FDA-Public Use
  Company Number: US-PFIZER INC-2016275356

PATIENT
  Age: 62 Year
  Sex: Male
  Weight: 100 kg

DRUGS (6)
  1. SUTENT [Suspect]
     Active Substance: SUNITINIB MALATE
     Dosage: 50 MG, CYCLIC (28 DAYS ON, 14 DAYS OFF)
     Dates: start: 20160528
  2. SUTENT [Suspect]
     Active Substance: SUNITINIB MALATE
     Dosage: 50 MG, CYCLIC
     Dates: start: 20160709
  3. SUTENT [Suspect]
     Active Substance: SUNITINIB MALATE
     Indication: METASTATIC RENAL CELL CARCINOMA
     Dosage: 50 MG, CYCLIC, ONCE DAILY FOR 4 WEEKS ON 2 WEEKS OFF (28 DAYS ON/14 DAYS OFF)
     Dates: start: 20160527
  4. ASPIRIN. [Concomitant]
     Active Substance: ASPIRIN
     Dosage: 325 MG, UNK
  5. SUTENT [Suspect]
     Active Substance: SUNITINIB MALATE
     Dosage: 25 MG, CYCLIC
     Dates: start: 20160926
  6. FERROUS SULFATE. [Concomitant]
     Active Substance: FERROUS SULFATE
     Dosage: 325 MG, (65 MG IRON)

REACTIONS (16)
  - Dry mouth [Not Recovered/Not Resolved]
  - Dysphagia [Recovered/Resolved]
  - Oropharyngeal pain [Recovered/Resolved]
  - Dyspnoea [Not Recovered/Not Resolved]
  - Pharyngeal mass [Recovered/Resolved]
  - Nausea [Recovered/Resolved]
  - Retching [Recovered/Resolved]
  - Tooth disorder [Recovered/Resolved]
  - Glossodynia [Recovered/Resolved]
  - Hypersomnia [Not Recovered/Not Resolved]
  - Dyspepsia [Not Recovered/Not Resolved]
  - Dysphonia [Not Recovered/Not Resolved]
  - Fatigue [Not Recovered/Not Resolved]
  - Oral pain [Recovered/Resolved]
  - Neoplasm progression [Not Recovered/Not Resolved]
  - Oral disorder [Recovered/Resolved]

NARRATIVE: CASE EVENT DATE: 20160528
